FAERS Safety Report 5808188-2 (Version None)
Quarter: 2008Q3

REPORT INFORMATION
  Report Type: 
  Country: None (occurrence: None)
  Receive Date: 20080709
  Receipt Date: 20080505
  Transmission Date: 20090109
  Serious: Yes (Other)
  Sender: FDA-Public Use
  Company Number: 2008017397

PATIENT
  Sex: Female

DRUGS (2)
  1. ZYRTEC [Suspect]
  2. LYRICA [Suspect]

REACTIONS (6)
  - CATARACT [None]
  - DIZZINESS [None]
  - SOMNOLENCE [None]
  - SYSTEMIC LUPUS ERYTHEMATOSUS [None]
  - VISION BLURRED [None]
  - WEIGHT INCREASED [None]
